FAERS Safety Report 17430246 (Version 8)
Quarter: 2020Q3

REPORT INFORMATION
  Report Type: Spontaneous
  Country: US (occurrence: US)
  Receive Date: 20200218
  Receipt Date: 20200902
  Transmission Date: 20201102
  Serious: No
  Sender: FDA-Public Use
  Company Number: US-PFIZER INC-2020069183

PATIENT
  Age: 67 Year
  Sex: Female
  Weight: 99.77 kg

DRUGS (4)
  1. LETROZOLE. [Concomitant]
     Active Substance: LETROZOLE
     Dosage: 2.5 (UNITS NOT PROVIDED), DAILY
     Dates: start: 201903
  2. XGEVA [Concomitant]
     Active Substance: DENOSUMAB
     Indication: METASTASES TO BONE
     Dosage: UNK
  3. HUMIRA [Concomitant]
     Active Substance: ADALIMUMAB
     Dosage: UNK
  4. IBRANCE [Suspect]
     Active Substance: PALBOCICLIB
     Indication: BREAST CANCER METASTATIC
     Dosage: 125 MG, CYCLIC (FOR 21 DAYS)
     Dates: start: 201903

REACTIONS (4)
  - Gait disturbance [Unknown]
  - Weight increased [Unknown]
  - Stress [Unknown]
  - Hernia [Unknown]
